FAERS Safety Report 5674225-1 (Version None)
Quarter: 2008Q1

REPORT INFORMATION
  Report Type: 
  Country: None (occurrence: None)
  Receive Date: 20080320
  Receipt Date: 20080312
  Transmission Date: 20080703
  Serious: Yes (Death)
  Sender: FDA-Public Use
  Company Number: US-ROCHE-539313

PATIENT
  Age: 72 Year
  Sex: Female
  Weight: 83.5 kg

DRUGS (4)
  1. BONIVA [Suspect]
     Indication: OSTEOPOROSIS
     Dosage: OTHER INDICATION: ^WORSENING BMD^
     Route: 065
     Dates: start: 20070212, end: 20070426
  2. OXYCONTIN [Concomitant]
     Indication: DRUG USE FOR UNKNOWN INDICATION
  3. UNSPECIFIED DRUG [Concomitant]
     Dosage: REPORTED AS HEADACHE MEDICATION.
  4. UNSPECIFIED DRUG [Concomitant]
     Dosage: REPORTED AS ANXIETY MEDICATION.

REACTIONS (1)
  - NON-SMALL CELL LUNG CANCER METASTATIC [None]
